FAERS Safety Report 9198456 (Version 1)
Quarter: 2013Q1

REPORT INFORMATION
  Report Type: Spontaneous
  Country: US (occurrence: None)
  Receive Date: 20120709
  Receipt Date: 20120709
  Transmission Date: 20140127
  Serious: Yes (Other)
  Sender: FDA-Public Use
  Company Number: PHHY2011US56320

PATIENT
  Age: 81 Year
  Sex: Female

DRUGS (4)
  1. GLEEVEC (IMATINIB) UNKNOWN [Suspect]
  2. COZAAR (LOSARTAN POTASSIUM) [Concomitant]
  3. HYDROCHLOROTHIAZIDE (HYDROCHLOROTHIAZIDE) [Concomitant]
  4. LEVOTHYROXINE (LEVOTHYROXINE) [Concomitant]

REACTIONS (4)
  - Disease progression [None]
  - Lymphadenopathy [None]
  - Fluid retention [None]
  - Pigmentation disorder [None]
